FAERS Safety Report 4689805-X (Version None)
Quarter: 2005Q2

REPORT INFORMATION
  Report Type: 
  Country: None (occurrence: None)
  Receive Date: 20050613
  Receipt Date: 20050613
  Transmission Date: 20051028
  Serious: Yes (Hospitalization)
  Sender: FDA-Public Use
  Company Number: None

PATIENT
  Age: 26 Year
  Sex: Female
  Weight: 72.5755 kg

DRUGS (1)
  1. SEPTRA DS [Suspect]
     Indication: ACNE
     Dosage: 1 TABLET    TWICE DAILY   ORAL
     Route: 048
     Dates: start: 20050524, end: 20050607

REACTIONS (5)
  - ANXIETY [None]
  - HEADACHE [None]
  - MOVEMENT DISORDER [None]
  - MUSCULOSKELETAL STIFFNESS [None]
  - PAIN [None]
